FAERS Safety Report 24057720 (Version 1)
Quarter: 2024Q3

REPORT INFORMATION
  Report Type: Spontaneous
  Country: US (occurrence: US)
  Receive Date: 20240706
  Receipt Date: 20240706
  Transmission Date: 20241017
  Serious: Yes (Hospitalization)
  Sender: AMGEN
  Company Number: US-AMGEN-USASP2024130738

PATIENT
  Age: 60 Year
  Sex: Female

DRUGS (2)
  1. PREDNISONE [Suspect]
     Active Substance: PREDNISONE
     Indication: Cardiac sarcoidosis
     Dosage: 20 MILLIGRAM, QD
     Route: 048
  2. METHOTREXATE [Concomitant]
     Active Substance: METHOTREXATE
     Indication: Cardiac sarcoidosis
     Dosage: 10 MILLIGRAM, QWK

REACTIONS (7)
  - Ventricular tachycardia [Unknown]
  - Nausea [Unknown]
  - Atrioventricular block [Unknown]
  - Ejection fraction decreased [Unknown]
  - Inflammation [Unknown]
  - Emotional distress [Unknown]
  - Blood pressure increased [Unknown]
